FAERS Safety Report 5214358-7 (Version None)
Quarter: 2007Q1

REPORT INFORMATION
  Report Type: 
  Country: None (occurrence: None)
  Receive Date: 20070122
  Receipt Date: 20070118
  Transmission Date: 20070707
  Serious: Yes (Hospitalization)
  Sender: FDA-Public Use
  Company Number: US-GLAXOSMITHKLINE-A0633967B

PATIENT
  Age: 72 Year
  Sex: Female
  Weight: 66.4 kg

DRUGS (2)
  1. TOPOTECAN [Suspect]
     Indication: VAGINAL CANCER
     Dosage: 3MGM2 CYCLIC
     Route: 042
     Dates: start: 20061214
  2. BORTEZOMIB [Suspect]
     Dosage: 1.6MGM2 CYCLIC
     Route: 042
     Dates: start: 20061214

REACTIONS (2)
  - BLOOD SODIUM DECREASED [None]
  - LETHARGY [None]
